FAERS Safety Report 15620723 (Version 1)
Quarter: 2018Q4

REPORT INFORMATION
  Report Type: Spontaneous
  Country: KR (occurrence: KR)
  Receive Date: 20181115
  Receipt Date: 20181115
  Transmission Date: 20190205
  Serious: Yes (Hospitalization, Other)
  Sender: FDA-Public Use
  Company Number: KR-ALEMBIC PHARMACUETICALS LIMITED-2018SCAL000751

PATIENT
  Age: 49 Year
  Sex: Female

DRUGS (2)
  1. VENLAFAXINE HYDROCHLORIDE. [Suspect]
     Active Substance: VENLAFAXINE HYDROCHLORIDE
     Dosage: APPROXIMATELY 40 TABLETS (TOTAL OF 3G)
  2. VENLAFAXINE HYDROCHLORIDE. [Suspect]
     Active Substance: VENLAFAXINE HYDROCHLORIDE
     Indication: DEPRESSION
     Dosage: 75 MILLIGRAM, QD

REACTIONS (13)
  - Compartment syndrome [Recovering/Resolving]
  - Paraesthesia [Recovering/Resolving]
  - Coma scale abnormal [Recovering/Resolving]
  - Pain in extremity [Recovering/Resolving]
  - Stupor [Recovering/Resolving]
  - Rhabdomyolysis [Recovering/Resolving]
  - Suicide attempt [Unknown]
  - Electrocardiogram QT prolonged [Recovering/Resolving]
  - Sciatic nerve neuropathy [Recovering/Resolving]
  - Gait disturbance [Recovering/Resolving]
  - Muscular weakness [Recovering/Resolving]
  - Overdose [Unknown]
  - Mydriasis [Recovering/Resolving]
